FAERS Safety Report 18597117 (Version 1)
Quarter: 2020Q4

REPORT INFORMATION
  Report Type: Spontaneous
  Country: GB (occurrence: GB)
  Receive Date: 20201209
  Receipt Date: 20201209
  Transmission Date: 20210114
  Serious: Yes (Other)
  Sender: FDA-Public Use
  Company Number: NVSC2020GB320498

PATIENT
  Age: 24 Year
  Sex: Female
  Weight: 57 kg

DRUGS (2)
  1. NAPROXEN. [Suspect]
     Active Substance: NAPROXEN
     Indication: MUSCLE STRAIN
     Dosage: 500 MG
     Route: 048
     Dates: start: 20201110, end: 20201112
  2. CODEINE PHOSPHATE [Suspect]
     Active Substance: CODEINE PHOSPHATE
     Indication: PRODUCT USED FOR UNKNOWN INDICATION
     Dosage: 30MG/ 500MG
     Route: 048
     Dates: start: 20201110, end: 20201112

REACTIONS (2)
  - Hypervigilance [Recovering/Resolving]
  - Appetite disorder [Not Recovered/Not Resolved]

NARRATIVE: CASE EVENT DATE: 20201111
